FAERS Safety Report 6274176-8 (Version None)
Quarter: 2009Q3

REPORT INFORMATION
  Report Type: 
  Country: None (occurrence: None)
  Receive Date: 20090720
  Receipt Date: 20090708
  Transmission Date: 20100115
  Serious: Yes (Hospitalization, Other)
  Sender: FDA-Public Use
  Company Number: FR-PFIZER INC-2009241295

PATIENT
  Age: 0 Day

DRUGS (3)
  1. ATARAX [Suspect]
     Dosage: UNK
     Route: 064
     Dates: end: 20081227
  2. ANAFRANIL [Suspect]
     Dosage: UNK
     Route: 064
     Dates: end: 20081227
  3. NOZINAN [Suspect]
     Dosage: UNK
     Route: 064
     Dates: end: 20081227

REACTIONS (7)
  - BRADYCARDIA NEONATAL [None]
  - CONVULSION NEONATAL [None]
  - CYANOSIS NEONATAL [None]
  - DRUG EXPOSURE DURING PREGNANCY [None]
  - FOETAL CARDIAC DISORDER [None]
  - HYPOTONIA NEONATAL [None]
  - INFANTILE APNOEIC ATTACK [None]
